FAERS Safety Report 11145744 (Version 1)
Quarter: 2015Q2

REPORT INFORMATION
  Report Type: Spontaneous
  Country: BR (occurrence: BR)
  Receive Date: 20150528
  Receipt Date: 20150528
  Transmission Date: 20150821
  Serious: Yes (Other)
  Sender: FDA-Public Use
  Company Number: BR-PFIZER INC-2015178328

PATIENT
  Age: 37 Year
  Sex: Male

DRUGS (6)
  1. DIAZEPAM. [Concomitant]
     Active Substance: DIAZEPAM
     Dosage: UNK
  2. DEPAKENE [Concomitant]
     Active Substance: VALPROIC ACID
     Dosage: UNK
  3. GEODON [Suspect]
     Active Substance: ZIPRASIDONE HYDROCHLORIDE\ZIPRASIDONE MESYLATE
     Indication: LAFORA^S MYOCLONIC EPILEPSY
     Dosage: 80 MG, 2X/DAY
     Route: 048
     Dates: start: 20150512, end: 201505
  4. FLUOXETINE [Concomitant]
     Active Substance: FLUOXETINE\FLUOXETINE HYDROCHLORIDE
     Dosage: UNK
  5. CARBAMAZEPINE. [Concomitant]
     Active Substance: CARBAMAZEPINE
     Dosage: UNK
  6. GEODON [Suspect]
     Active Substance: ZIPRASIDONE HYDROCHLORIDE\ZIPRASIDONE MESYLATE
     Dosage: 80 MG, 1X/DAY
     Route: 048
     Dates: start: 201505

REACTIONS (7)
  - Atrophy [Unknown]
  - Nerve compression [Unknown]
  - Abasia [Unknown]
  - Aphasia [Unknown]
  - Product use issue [Unknown]
  - Movement disorder [Unknown]
  - Disease progression [Unknown]

NARRATIVE: CASE EVENT DATE: 201505
